FAERS Safety Report 7305299-X (Version None)
Quarter: 2011Q1

REPORT INFORMATION
  Report Type: 
  Country: None (occurrence: None)
  Receive Date: 20110222
  Receipt Date: 20110210
  Transmission Date: 20110831
  Serious: Yes (Hospitalization)
  Sender: FDA-Public Use
  Company Number: DE-ELI_LILLY_AND_COMPANY-DE201102002925

PATIENT
  Age: 70 Year
  Sex: Female

DRUGS (3)
  1. VALPROAT [Concomitant]
  2. ZYPREXA [Suspect]
     Indication: SCHIZOAFFECTIVE DISORDER
     Dosage: 5 MG, UNK
     Route: 048
     Dates: start: 20030101
  3. CIPRAMIL [Concomitant]

REACTIONS (3)
  - AGITATION [None]
  - THORACIC VERTEBRAL FRACTURE [None]
  - ABNORMAL DREAMS [None]
